FAERS Safety Report 20382607 (Version 2)
Quarter: 2022Q1

REPORT INFORMATION
  Report Type: Spontaneous
  Country: IT (occurrence: IT)
  Receive Date: 20220127
  Receipt Date: 20220201
  Transmission Date: 20220423
  Serious: Yes (Other)
  Sender: FDA-Public Use
  Company Number: IT-MLMSERVICE-20220110-3310081-7

PATIENT
  Age: 76 Year
  Sex: Female

DRUGS (2)
  1. CARBOPLATIN [Suspect]
     Active Substance: CARBOPLATIN
     Indication: Ovarian cancer stage III
     Dosage: 500 MG, CYCLIC AS PER 16-STEP DESENSITIZATION PROTOCOL
     Dates: start: 2020
  2. OMALIZUMAB [Concomitant]
     Active Substance: OMALIZUMAB
     Indication: Immune tolerance induction
     Dosage: 15 DAYS AND - 2 DAYS PRIOR TO THE FIRST OPTIMIZED DD CYCLE, AND THEN -2 DAYS PRIOR

REACTIONS (4)
  - Angioedema [Unknown]
  - Throat tightness [Unknown]
  - Urticaria [Unknown]
  - Flushing [Unknown]

NARRATIVE: CASE EVENT DATE: 20200101
